FAERS Safety Report 24426610 (Version 1)
Quarter: 2024Q4

REPORT INFORMATION
  Report Type: Spontaneous
  Country: US (occurrence: None)
  Receive Date: 20241010
  Receipt Date: 20241010
  Transmission Date: 20250114
  Serious: Yes (Hospitalization)
  Sender: Public
  Company Number: None

PATIENT
  Age: 58 Year
  Sex: Female

DRUGS (12)
  1. ASTAGRAF XL [Suspect]
     Active Substance: TACROLIMUS
     Indication: Transplant
     Dosage: FREQUENCY : DAILY;?
     Route: 048
     Dates: start: 20230415
  2. ASTAGRAF XL [Suspect]
     Active Substance: TACROLIMUS
     Indication: Transplant
     Dosage: FREQUENCY : TWICE A DAY;?
     Route: 048
     Dates: start: 20230415
  3. PREDNISONE 5MG/METOCLOPRAM 5MG [Concomitant]
  4. PROAIR/OMEPRAZOLE 10MG [Concomitant]
  5. ATORVASTATIN 10MG/SUMBICORT 160/4.5 [Concomitant]
  6. CALCIUM 500 + D METOPROLOL ER 5D [Concomitant]
  7. FLUTICASONE NASAL SPRAY [Concomitant]
  8. GLIPIZIDE 10MG [Concomitant]
  9. HUMALOG PEN [Concomitant]
  10. LANTUS PEN [Concomitant]
  11. LEVOTHYROXINE 25 MCG [Concomitant]
  12. LORATAIDINE 10MG [Concomitant]

REACTIONS (1)
  - Kidney infection [None]
